FAERS Safety Report 6250399-9 (Version None)
Quarter: 2009Q2

REPORT INFORMATION
  Report Type: 
  Country: None (occurrence: None)
  Receive Date: 20090630
  Receipt Date: 20090626
  Transmission Date: 20091009
  Serious: Yes (Hospitalization)
  Sender: FDA-Public Use
  Company Number: JP-BRISTOL-MYERS SQUIBB COMPANY-14681522

PATIENT
  Sex: Female

DRUGS (5)
  1. DESYREL [Suspect]
     Route: 064
  2. ROHYPNOL [Suspect]
     Route: 064
  3. DORAL [Suspect]
     Route: 064
  4. CERCINE [Suspect]
     Route: 064
  5. DEPAS [Suspect]
     Route: 064

REACTIONS (4)
  - DECREASED ACTIVITY [None]
  - DRUG WITHDRAWAL SYNDROME NEONATAL [None]
  - FEEDING DISORDER NEONATAL [None]
  - WEIGHT GAIN POOR [None]
